FAERS Safety Report 7797133-9 (Version None)
Quarter: 2011Q4

REPORT INFORMATION
  Report Type: 
  Country: None (occurrence: None)
  Receive Date: 20111005
  Receipt Date: 20110929
  Transmission Date: 20120403
  Serious: Yes (Other)
  Sender: FDA-Public Use
  Company Number: US-AMGEN-USASP2011050393

PATIENT
  Age: 75 Year
  Sex: Female

DRUGS (1)
  1. ENBREL [Suspect]
     Indication: RHEUMATOID ARTHRITIS
     Dosage: 50 MG, QWK
     Dates: start: 20110501, end: 20110801

REACTIONS (6)
  - PRURITUS GENERALISED [None]
  - INFECTION [None]
  - DIARRHOEA [None]
  - HEART RATE INCREASED [None]
  - DYSPNOEA [None]
  - SCAR [None]
